FAERS Safety Report 9664511 (Version 1)
Quarter: 2013Q4

REPORT INFORMATION
  Report Type: Spontaneous
  Country: US (occurrence: None)
  Receive Date: 20131030
  Receipt Date: 20131030
  Transmission Date: 20140711
  Serious: Yes (Hospitalization)
  Sender: FDA-Public Use
  Company Number: None

PATIENT
  Age: 45 Year
  Sex: Male
  Weight: 90.9 kg

DRUGS (2)
  1. HYDROXYZINE [Suspect]
     Route: 048
     Dates: start: 20130823, end: 20130825
  2. GABAPENTIN [Suspect]
     Route: 048
     Dates: start: 20130529, end: 20130925

REACTIONS (3)
  - Urinary retention [None]
  - Suicidal ideation [None]
  - Intentional overdose [None]
